FAERS Safety Report 4443695-9 (Version None)
Quarter: 2004Q3

REPORT INFORMATION
  Report Type: 
  Country: None (occurrence: None)
  Receive Date: 20040908
  Receipt Date: 20040831
  Transmission Date: 20050211
  Serious: Yes (Other)
  Sender: FDA-Public Use
  Company Number: GB-ROCHE-379369

PATIENT
  Age: 46 Year
  Sex: Female

DRUGS (2)
  1. ORLISTAT [Suspect]
     Indication: OBESITY
     Dosage: DURATION WAS REPORTED AS 1.13 MONTHS
     Route: 048
     Dates: start: 20040610, end: 20040714
  2. THYROXINE [Interacting]
     Indication: HYPOTHYROIDISM POSTOPERATIVE
     Route: 048
     Dates: start: 20020908

REACTIONS (3)
  - DRUG INTERACTION [None]
  - FATIGUE [None]
  - HYPOTHYROIDISM [None]
